FAERS Safety Report 10435783 (Version 1)
Quarter: 2014Q3

REPORT INFORMATION
  Report Type: Spontaneous
  Country: US (occurrence: None)
  Receive Date: 20140904
  Receipt Date: 20140904
  Transmission Date: 20150326
  Serious: No
  Sender: FDA-Public Use
  Company Number: None

PATIENT
  Age: 41 Year
  Sex: Female

DRUGS (3)
  1. VELCADE [Suspect]
     Active Substance: BORTEZOMIB
     Indication: PLASMA CELL MYELOMA
     Route: 058
     Dates: start: 20120723, end: 20130801
  2. DECADRON [Concomitant]
     Active Substance: DEXAMETHASONE
  3. CYTOXAN [Concomitant]
     Active Substance: CYCLOPHOSPHAMIDE

REACTIONS (12)
  - Insomnia [None]
  - Skin hypertrophy [None]
  - Eczema [None]
  - Fatigue [None]
  - Nausea [None]
  - Bronchitis [None]
  - Pain in extremity [None]
  - Immunosuppression [None]
  - Hordeolum [None]
  - Vision blurred [None]
  - Neuropathy peripheral [None]
  - Back pain [None]

NARRATIVE: CASE EVENT DATE: 20130301
